FAERS Safety Report 13206746 (Version 6)
Quarter: 2018Q3

REPORT INFORMATION
  Report Type: Report from Study
  Country: None (occurrence: JP)
  Receive Date: 20170209
  Receipt Date: 20180910
  Transmission Date: 20181010
  Serious: Yes (Other)
  Sender: FDA-Public Use
  Company Number: JP-ABBVIE-17P-087-1868376-00

PATIENT
  Age: 13 Year
  Sex: Female

DRUGS (23)
  1. LIPACREON [Suspect]
     Active Substance: PANCRELIPASE
     Dosage: 450 MG, QD
     Route: 048
     Dates: start: 20160617, end: 20170302
  2. LIPACREON [Suspect]
     Active Substance: PANCRELIPASE
     Dosage: 600 MG, QD
     Route: 048
     Dates: start: 20170303
  3. TRANSAMIN [Concomitant]
     Active Substance: TRANEXAMIC ACID
     Indication: PRODUCT USED FOR UNKNOWN INDICATION
     Dosage: 750 MG/DAY
     Route: 048
     Dates: start: 20151113
  4. TRANSAMIN [Concomitant]
     Active Substance: TRANEXAMIC ACID
     Indication: HAEMATEMESIS
  5. LASIX [Concomitant]
     Active Substance: FUROSEMIDE
     Indication: PRODUCT USED FOR UNKNOWN INDICATION
     Dosage: UNK
     Route: 048
     Dates: start: 20160219, end: 20160414
  6. TAKEPRON [Concomitant]
     Active Substance: LANSOPRAZOLE
     Indication: PRODUCT USED FOR UNKNOWN INDICATION
     Dosage: 15 MG/DAY
     Route: 048
     Dates: start: 20130826, end: 20151112
  7. INTAL [Concomitant]
     Active Substance: CROMOLYN SODIUM
     Indication: CYSTIC FIBROSIS PANCREATIC
     Dosage: 3 DF/DAY
     Route: 055
     Dates: start: 20130826
  8. SINGULAIR [Concomitant]
     Active Substance: MONTELUKAST SODIUM
     Indication: CYSTIC FIBROSIS PANCREATIC
     Dosage: 5 MG/DAY
     Route: 048
     Dates: start: 20151218, end: 20180115
  9. PULMOZYME [Concomitant]
     Active Substance: DORNASE ALFA
     Indication: CYSTIC FIBROSIS PANCREATIC
     Dosage: 5 MG/DAY
     Route: 055
     Dates: start: 20130826
  10. HOKUNALIN [Concomitant]
     Active Substance: TULOBUTEROL
     Indication: CYSTIC FIBROSIS PANCREATIC
     Dosage: 2 MG/DAY
     Route: 062
     Dates: start: 20160513
  11. BIO?THREE [Concomitant]
     Active Substance: HERBALS
     Indication: PRODUCT USED FOR UNKNOWN INDICATION
     Dosage: 2 DF/DAY
     Route: 048
     Dates: start: 20151113
  12. CLARITIN [Concomitant]
     Active Substance: LORATADINE
     Indication: THROAT IRRITATION
     Dosage: 10 MG/DAY
     Route: 048
     Dates: start: 20151113, end: 20151217
  13. URSO [Concomitant]
     Active Substance: URSODIOL
     Indication: PRODUCT USED FOR UNKNOWN INDICATION
     Dosage: 100 MG/DAY
     Route: 048
     Dates: start: 20140110
  14. LASIX [Concomitant]
     Active Substance: FUROSEMIDE
     Dosage: 10 MG/DAY
     Route: 048
     Dates: start: 20160219, end: 20160414
  15. FERROUS SULFATE. [Concomitant]
     Active Substance: FERROUS SULFATE
     Indication: HAEMATOCHEZIA
     Route: 048
     Dates: start: 20170512, end: 20170616
  16. KLARICID [Concomitant]
     Active Substance: CLARITHROMYCIN
     Indication: CYSTIC FIBROSIS PANCREATIC
     Dosage: 300 MG/DAY
     Route: 048
     Dates: start: 20130826
  17. NEXIUM [Concomitant]
     Active Substance: ESOMEPRAZOLE MAGNESIUM
     Indication: PRODUCT USED FOR UNKNOWN INDICATION
     Dosage: 20 MG/DAY
     Route: 048
     Dates: start: 20151113
  18. TOBI [Concomitant]
     Active Substance: TOBRAMYCIN
     Indication: CYSTIC FIBROSIS PANCREATIC
     Dosage: 600 MG/DAY
     Route: 055
     Dates: start: 20131101
  19. MUCODYNE [Concomitant]
     Active Substance: CARBOCYSTEINE
     Indication: CYSTIC FIBROSIS PANCREATIC
     Dosage: 1000 MG/DAY
     Route: 048
     Dates: start: 20130826
  20. LASIX [Concomitant]
     Active Substance: FUROSEMIDE
     Dosage: 20 MG/DAY
     Route: 048
     Dates: start: 20160415, end: 20160513
  21. BISOLVON [Concomitant]
     Active Substance: BROMHEXINE HYDROCHLORIDE
     Indication: CYSTIC FIBROSIS PANCREATIC
     Dosage: 6 ML/DAY
     Route: 055
     Dates: start: 20130826
  22. FERROMIA [Concomitant]
     Active Substance: SODIUM FERROUS CITRATE
     Indication: ANAEMIA
     Dosage: 100 MG/DAY
     Route: 048
     Dates: start: 20160219, end: 20160415
  23. LIPACREON [Suspect]
     Active Substance: PANCRELIPASE
     Indication: PANCREATIC FAILURE
     Dosage: 150 MG, QID
     Route: 048
     Dates: start: 20130826, end: 20160616

REACTIONS (3)
  - Anaemia [Not Recovered/Not Resolved]
  - Haemoptysis [Not Recovered/Not Resolved]
  - Haematemesis [Recovered/Resolved]

NARRATIVE: CASE EVENT DATE: 20140516
